FAERS Safety Report 6298556-X (Version None)
Quarter: 2009Q3

REPORT INFORMATION
  Report Type: 
  Country: None (occurrence: None)
  Receive Date: 20090803
  Receipt Date: 20090729
  Transmission Date: 20100115
  Serious: Yes (Other)
  Sender: FDA-Public Use
  Company Number: A0799364A

PATIENT
  Age: 21 Year
  Sex: Male

DRUGS (1)
  1. ASPIRIN + CAFFEINE + SALICYLAMIDE POWDER (ASPIRIN+CAFFEINE+SALICYLA) [Suspect]
     Indication: HEADACHE
     Dosage: SINGLE DOSE / ORAL
     Route: 048
     Dates: start: 20090701, end: 20090701

REACTIONS (2)
  - ABDOMINAL DISTENSION [None]
  - RECTAL HAEMORRHAGE [None]
